FAERS Safety Report 12639741 (Version 1)
Quarter: 2016Q3

REPORT INFORMATION
  Report Type: Spontaneous
  Country: US (occurrence: None)
  Receive Date: 20160809
  Receipt Date: 20160809
  Transmission Date: 20161109
  Serious: Yes (Hospitalization)
  Sender: FDA-Public Use
  Company Number: None

PATIENT
  Age: 73 Year
  Sex: Male
  Weight: 65.55 kg

DRUGS (2)
  1. CIPROFLOXACN [Suspect]
     Active Substance: CIPROFLOXACIN
     Indication: SOFT TISSUE INFECTION
     Route: 048
     Dates: start: 20160318, end: 20160417
  2. CLINDAMYCIN [Suspect]
     Active Substance: CLINDAMYCIN\CLINDAMYCIN PHOSPHATE
     Indication: SOFT TISSUE INFECTION
     Route: 048
     Dates: start: 20160318, end: 20160417

REACTIONS (2)
  - Renal failure [None]
  - Tubulointerstitial nephritis [None]

NARRATIVE: CASE EVENT DATE: 20160328
